FAERS Safety Report 11673341 (Version 1)
Quarter: 2015Q4

REPORT INFORMATION
  Report Type: Spontaneous
  Country: US (occurrence: US)
  Receive Date: 20151028
  Receipt Date: 20151028
  Transmission Date: 20160304
  Serious: No
  Sender: FDA-Public Use
  Company Number: PHEH2015US006162

PATIENT
  Age: 7 Year
  Sex: Female

DRUGS (6)
  1. FOCALIN XR [Suspect]
     Active Substance: DEXMETHYLPHENIDATE HYDROCHLORIDE
     Dosage: 15 MG, UNK
     Route: 065
     Dates: start: 20140920
  2. FOCALIN XR [Suspect]
     Active Substance: DEXMETHYLPHENIDATE HYDROCHLORIDE
     Indication: ATTENTION DEFICIT/HYPERACTIVITY DISORDER
     Dosage: 10 MG, UNK
     Route: 065
  3. FOCALIN XR [Suspect]
     Active Substance: DEXMETHYLPHENIDATE HYDROCHLORIDE
     Dosage: 3 PRESCRIPTION OF FOCALIN XR
     Route: 065
     Dates: start: 20150328
  4. DEXMETHYLPHENIDATE HYDROCHLORIDE. [Suspect]
     Active Substance: DEXMETHYLPHENIDATE HYDROCHLORIDE
     Dosage: RESTARTED THE GENERIC FOCALIN XR FOR 5 DAYS
     Route: 065
     Dates: start: 20150305, end: 20150328
  5. DEXMETHYLPHENIDATE HYDROCHLORIDE. [Suspect]
     Active Substance: DEXMETHYLPHENIDATE HYDROCHLORIDE
     Indication: ATTENTION DEFICIT/HYPERACTIVITY DISORDER
     Dosage: 15 MG, UNK
     Route: 065
  6. FOCALIN XR [Suspect]
     Active Substance: DEXMETHYLPHENIDATE HYDROCHLORIDE
     Dosage: 10 MG, UNK
     Route: 065
     Dates: start: 20150221, end: 20150305

REACTIONS (12)
  - Depression [Recovering/Resolving]
  - Weight increased [Recovering/Resolving]
  - Decreased appetite [Recovering/Resolving]
  - Attention deficit/hyperactivity disorder [Recovering/Resolving]
  - Drooling [Recovering/Resolving]
  - Tic [Recovering/Resolving]
  - Retching [Recovering/Resolving]
  - Throat tightness [Recovering/Resolving]
  - Insomnia [Recovering/Resolving]
  - Abnormal behaviour [Recovering/Resolving]
  - Dysphagia [Recovering/Resolving]
  - Wrong technique in product usage process [Unknown]

NARRATIVE: CASE EVENT DATE: 20140920
